FAERS Safety Report 5838350-4 (Version None)
Quarter: 2008Q3

REPORT INFORMATION
  Report Type: 
  Country: None (occurrence: None)
  Receive Date: 20080808
  Receipt Date: 20080801
  Transmission Date: 20090109
  Serious: Yes (Death, Other)
  Sender: FDA-Public Use
  Company Number: SK-WYE-H05338208

PATIENT
  Age: 61 Year
  Sex: Female
  Weight: 95 kg

DRUGS (1)
  1. RAPAMUNE [Suspect]
     Indication: PROPHYLAXIS AGAINST TRANSPLANT REJECTION
     Dosage: 2 MG TABLET (DOSE AND REGIMEN UNSPECIFIED)
     Route: 048
     Dates: start: 20060607

REACTIONS (2)
  - LUNG SQUAMOUS CELL CARCINOMA RECURRENT [None]
  - SQUAMOUS CELL CARCINOMA [None]
